FAERS Safety Report 16446118 (Version 1)
Quarter: 2019Q2

REPORT INFORMATION
  Report Type: Spontaneous
  Country: US (occurrence: US)
  Receive Date: 20190618
  Receipt Date: 20190618
  Transmission Date: 20190711
  Serious: No
  Sender: FDA-Public Use
  Company Number: US-TARO-2018TAR00512

PATIENT
  Age: 82 Year
  Sex: Female
  Weight: 50.79 kg

DRUGS (1)
  1. NORTRIPTYLINE HCL CAPSULE [Suspect]
     Active Substance: NORTRIPTYLINE HYDROCHLORIDE

REACTIONS (1)
  - Hypersensitivity [Unknown]
